FAERS Safety Report 11555736 (Version 1)
Quarter: 2015Q3

REPORT INFORMATION
  Report Type: Spontaneous
  Country: US (occurrence: US)
  Receive Date: 20150925
  Receipt Date: 20150925
  Transmission Date: 20151125
  Serious: No
  Sender: FDA-Public Use
  Company Number: US-PFIZER INC-2015314246

PATIENT
  Age: 74 Year
  Sex: Male

DRUGS (19)
  1. ATENOLOL. [Concomitant]
     Active Substance: ATENOLOL
     Dosage: UNK
  2. OCUVITE [Concomitant]
     Active Substance: VITAMINS
     Dosage: UNK
  3. CALCIUM LACTATE [Concomitant]
     Active Substance: CALCIUM LACTATE
     Dosage: UNK
  4. VITAMIN D [Concomitant]
     Active Substance: CHOLECALCIFEROL
     Dosage: UNK
  5. MAGNESIUM [Concomitant]
     Active Substance: MAGNESIUM
     Dosage: UNK
  6. LISINOPRIL. [Concomitant]
     Active Substance: LISINOPRIL
     Dosage: UNK
  7. FISH OIL [Concomitant]
     Active Substance: FISH OIL
     Dosage: UNK
  8. ONDANSETRON HCL [Concomitant]
     Active Substance: ONDANSETRON HYDROCHLORIDE
     Dosage: UNK
  9. INLYTA [Suspect]
     Active Substance: AXITINIB
     Dosage: UNK
  10. METOCLOPRAMIDE HCL [Concomitant]
     Active Substance: METOCLOPRAMIDE HYDROCHLORIDE
     Dosage: UNK
  11. POTASSIUM [Concomitant]
     Active Substance: POTASSIUM
     Dosage: UNK
  12. TURMERIC [Concomitant]
     Active Substance: TURMERIC
     Dosage: UNK
  13. VITAMIN C [Concomitant]
     Active Substance: ASCORBIC ACID
     Dosage: UNK
  14. VITAMIN K [Concomitant]
     Active Substance: PHYTONADIONE
     Dosage: UNK
  15. CHROMIUM [Concomitant]
     Active Substance: CHROMIC CHLORIDE\CHROMIUM
     Dosage: UNK
  16. KRILL OIL [Concomitant]
     Active Substance: DIETARY SUPPLEMENT
     Dosage: UNK
  17. MAGNESIUM ASPARTATE [Concomitant]
     Active Substance: MAGNESIUM ASPARTATE
     Dosage: UNK
  18. COENZYME Q10 [Concomitant]
     Active Substance: UBIDECARENONE
     Dosage: UNK
  19. FLAXSEED [Concomitant]
     Active Substance: FLAX SEED
     Dosage: UNK

REACTIONS (3)
  - Fatigue [Unknown]
  - Nausea [Unknown]
  - Dyspnoea [Unknown]
